FAERS Safety Report 8797809 (Version 1)
Quarter: 2012Q4

REPORT INFORMATION
  Report Type: 
  Country: US (occurrence: US)
  Receive Date: 20120920
  Receipt Date: 20120920
  Transmission Date: 20130627
  Serious: Yes (Other)
  Sender: FDA-Public Use
  Company Number: US-JNJCP-30000128824

PATIENT
  Age: 60 Year
  Sex: Female
  Weight: 61 kg

DRUGS (2)
  1. AVEENO POSITIVELY RADIANT CLEANSER [Suspect]
     Indication: REMOVAL OF DIRT FROM SKIN
     Dosage: pump until lathers, every night for several weeks
     Route: 047
     Dates: start: 201203
  2. BLOOD PRESSURE MEDICATION (REFUSED TO SPECIFY) [Concomitant]
     Indication: BLOOD PRESSURE HIGH

REACTIONS (6)
  - Corneal cyst [Recovered/Resolved]
  - Eye irritation [Recovered/Resolved]
  - Lacrimation increased [Recovered/Resolved]
  - Foreign body in eye [Recovered/Resolved]
  - Corneal scar [Recovered/Resolved]
  - Accidental exposure to product [Recovered/Resolved]
